FAERS Safety Report 5193573-5 (Version None)
Quarter: 2006Q4

REPORT INFORMATION
  Report Type: 
  Country: None (occurrence: None)
  Receive Date: 20061228
  Receipt Date: 20060828
  Transmission Date: 20070319
  Serious: No
  Sender: FDA-Public Use
  Company Number: PAR-4936

PATIENT
  Age: 68 Year
  Sex: Male
  Weight: 122.7 kg

DRUGS (4)
  1. FLUTICASONE PROPIONATE [Suspect]
     Indication: RHINITIS
     Dosage: 2SPR SINGLE DOSE
     Route: 045
     Dates: start: 20060825
  2. BENICAR [Concomitant]
     Dosage: 40MG PER DAY
  3. CRESTOR [Concomitant]
     Dosage: 10MG PER DAY
  4. ASPIRIN [Concomitant]
     Dosage: 81MG PER DAY

REACTIONS (2)
  - ILL-DEFINED DISORDER [None]
  - PHARMACEUTICAL PRODUCT COMPLAINT [None]
